FAERS Safety Report 9753727 (Version 1)
Quarter: 2013Q4

REPORT INFORMATION
  Report Type: Spontaneous
  Country: US (occurrence: US)
  Receive Date: 20131213
  Receipt Date: 20131213
  Transmission Date: 20140711
  Serious: No
  Sender: FDA-Public Use
  Company Number: US-GILEAD-2010-0026649

PATIENT
  Age: 73 Year
  Sex: Female

DRUGS (5)
  1. LETAIRIS [Suspect]
     Indication: PULMONARY ARTERIAL HYPERTENSION
     Route: 048
     Dates: end: 20100113
  2. HYDROCHLOROTHIAZIDE [Concomitant]
  3. SPIRONOLACTONE [Concomitant]
     Route: 048
  4. PREDNISONE [Concomitant]
  5. LEVOTHYROXINE [Concomitant]

REACTIONS (1)
  - Dyspnoea [Not Recovered/Not Resolved]
